FAERS Safety Report 17886475 (Version 3)
Quarter: 2020Q3

REPORT INFORMATION
  Report Type: Spontaneous
  Country: IT (occurrence: IT)
  Receive Date: 20200611
  Receipt Date: 20200807
  Transmission Date: 20201103
  Serious: Yes (Hospitalization)
  Sender: FDA-Public Use
  Company Number: NVSC2020IT163481

PATIENT
  Age: 51 Year
  Sex: Male

DRUGS (5)
  1. AMOXICILLIN. [Suspect]
     Active Substance: AMOXICILLIN
     Indication: INTENTIONAL SELF-INJURY
     Dosage: 9 DF (TOTAL)
     Route: 048
     Dates: start: 20200430, end: 20200430
  2. CONTRAMAL [Suspect]
     Active Substance: TRAMADOL HYDROCHLORIDE
     Indication: INTENTIONAL SELF-INJURY
     Dosage: 10 DF (TOTAL)
     Route: 048
     Dates: start: 20200430, end: 20200430
  3. VOLTAREN [Suspect]
     Active Substance: DICLOFENAC SODIUM
     Indication: INTENTIONAL SELF-INJURY
     Dosage: 30 DF (TOTAL)
     Route: 048
     Dates: start: 20200430, end: 20200430
  4. DIAZEPAM. [Suspect]
     Active Substance: DIAZEPAM
     Indication: INTENTIONAL SELF-INJURY
     Dosage: 20 ML (TOTAL)
     Route: 065
     Dates: start: 20200430, end: 20200430
  5. DICLOFENAC SODIUM. [Suspect]
     Active Substance: DICLOFENAC SODIUM
     Indication: INTENTIONAL SELF-INJURY
     Dosage: 30 DF (TOTAL)
     Route: 048
     Dates: start: 20200430, end: 20200430

REACTIONS (2)
  - Substance abuse [Recovering/Resolving]
  - Gastritis [Recovering/Resolving]

NARRATIVE: CASE EVENT DATE: 20200430
